FAERS Safety Report 9122549 (Version 4)
Quarter: 2013Q3

REPORT INFORMATION
  Report Type: Report from Study
  Country: JP (occurrence: JP)
  Receive Date: 20130227
  Receipt Date: 20130911
  Transmission Date: 20140515
  Serious: Yes (Disabling)
  Sender: FDA-Public Use
  Company Number: JP-PFIZER INC-2013068575

PATIENT
  Age: 58 Year
  Sex: Male
  Weight: 78.7 kg

DRUGS (5)
  1. XALKORI [Suspect]
     Indication: NON-SMALL CELL LUNG CANCER
     Dosage: 250 MG, 2X/DAY
     Route: 048
     Dates: start: 20121103, end: 20121108
  2. XALKORI [Suspect]
     Dosage: 200 MG, 2X/DAY
     Dates: start: 20121109, end: 20121207
  3. ACINON [Concomitant]
     Dosage: 150 MG, 2X/DAY
     Route: 048
     Dates: start: 20121125, end: 20121213
  4. REMERON [Concomitant]
     Dosage: 15 MG, 1X/DAY
     Route: 048
     Dates: start: 20121119, end: 20121213
  5. HANGE-SHASHIN-TO [Concomitant]
     Dosage: 2.5 G, 3X/DAY
     Route: 048
     Dates: start: 20121112, end: 20121213

REACTIONS (1)
  - Cerebral infarction [Recovered/Resolved with Sequelae]
